FAERS Safety Report 4614714-1 (Version None)
Quarter: 2005Q1

REPORT INFORMATION
  Report Type: 
  Country: None (occurrence: None)
  Receive Date: 20050322
  Receipt Date: 20050308
  Transmission Date: 20050727
  Serious: Yes (Life-Threatening, Other)
  Sender: FDA-Public Use
  Company Number: US-JNJFOC-20040907718

PATIENT
  Sex: Female
  Weight: 58.97 kg

DRUGS (9)
  1. REMICADE [Suspect]
     Route: 042
  2. REMICADE [Suspect]
     Indication: RHEUMATOID ARTHRITIS
     Route: 042
  3. METHOTREXATE [Concomitant]
  4. MEDROL [Concomitant]
  5. LESCOL [Concomitant]
  6. VERAPAMIL [Concomitant]
  7. PREDNISONE [Concomitant]
  8. ACTONEL [Concomitant]
     Indication: OSTEOPOROSIS
  9. INDAPAMIDE [Concomitant]

REACTIONS (6)
  - ASPERGILLOMA [None]
  - BRAIN MASS [None]
  - CEREBROVASCULAR ACCIDENT [None]
  - DEEP VEIN THROMBOSIS [None]
  - GRANULOMA [None]
  - PULMONARY EMBOLISM [None]
